FAERS Safety Report 8384089-3 (Version None)
Quarter: 2012Q2

REPORT INFORMATION
  Report Type: 
  Country: None (occurrence: None)
  Receive Date: 20120524
  Receipt Date: 20120515
  Transmission Date: 20120825
  Serious: Yes (Other)
  Sender: FDA-Public Use
  Company Number: CA-PFIZER INC-2012123558

PATIENT
  Age: 74 Year
  Sex: Male

DRUGS (10)
  1. ALFUZOSIN HCL [Suspect]
     Indication: URINARY TRACT DISORDER
     Dosage: 10 MG, AT BEDTIME
     Route: 048
     Dates: start: 20070101, end: 20120515
  2. LANTUS [Suspect]
     Indication: DIABETES MELLITUS
     Dosage: 74 IU DAILY, (36 IU IN THE MORNING AND 38 IU AT BEDTIME)
     Route: 058
     Dates: start: 20070101
  3. NOVORAPID [Concomitant]
     Indication: DIABETES MELLITUS
     Dosage: UNK
     Dates: start: 20070101
  4. AVODART [Concomitant]
     Indication: URINARY TRACT DISORDER
     Dosage: UNK
     Dates: start: 20080101, end: 20120515
  5. CLONIDINE [Concomitant]
     Indication: HYPERTENSION
     Dosage: UNK
     Dates: start: 20090101
  6. ATENOLOL [Concomitant]
     Indication: HYPERTENSION
     Dosage: UNK
     Dates: start: 20090101
  7. ALTACE [Suspect]
     Indication: HYPERTENSION
     Dosage: 10 MG, DAILY
     Route: 048
     Dates: start: 20090101
  8. AVALIDE [Suspect]
     Indication: HYPERTENSION
     Dosage: 24 MG, DAILY
     Route: 048
     Dates: start: 20090101
  9. TESTIM [Suspect]
     Indication: HORMONE REPLACEMENT THERAPY
     Dosage: UNK
     Route: 061
     Dates: start: 20110701, end: 20111212
  10. AMLODIPINE [Concomitant]
     Indication: HYPERTENSION
     Dosage: UNK
     Dates: start: 20090101

REACTIONS (2)
  - PROSTATE CANCER [None]
  - DRUG ADMINISTRATION ERROR [None]
